FAERS Safety Report 20357440 (Version 5)
Quarter: 2023Q4

REPORT INFORMATION
  Report Type: Spontaneous
  Country: US (occurrence: US)
  Receive Date: 20220120
  Receipt Date: 20231201
  Transmission Date: 20240110
  Serious: No
  Sender: FDA-Public Use
  Company Number: US-PFIZER INC-202101441078

PATIENT
  Age: 81 Year
  Sex: Female
  Weight: 64.9 kg

DRUGS (3)
  1. IBRANCE [Suspect]
     Active Substance: PALBOCICLIB
     Indication: Breast cancer metastatic
     Dosage: 125 MG
     Dates: start: 20210920
  2. IBRANCE [Suspect]
     Active Substance: PALBOCICLIB
     Dosage: 100 MG ONCE A DAY, TAKE FOR 21 DAYS THEN 7 DAYS OFF
     Route: 048
  3. IBRANCE [Suspect]
     Active Substance: PALBOCICLIB
     Dosage: DAYS 1-21 EVERY 28 DAYS
     Route: 048

REACTIONS (2)
  - Hair disorder [Unknown]
  - Nail disorder [Unknown]

NARRATIVE: CASE EVENT DATE: 20210101
